APPROVED DRUG PRODUCT: EPINEPHRINE
Active Ingredient: EPINEPHRINE
Strength: EQ 30MG BASE/30ML (EQ 1MG BASE/ML)
Dosage Form/Route: SOLUTION;INTRAMUSCULAR, INTRAVENOUS, SUBCUTANEOUS
Application: A217192 | Product #001 | TE Code: AP
Applicant: AMERICAN REGENT INC
Approved: Sep 6, 2024 | RLD: No | RS: No | Type: RX